FAERS Safety Report 5804437-5 (Version None)
Quarter: 2008Q3

REPORT INFORMATION
  Report Type: 
  Country: None (occurrence: None)
  Receive Date: 20080709
  Receipt Date: 20080708
  Transmission Date: 20090109
  Serious: Yes (Hospitalization)
  Sender: FDA-Public Use
  Company Number: A0736348A

PATIENT
  Age: 39 Year
  Sex: Female

DRUGS (1)
  1. ALLI [Suspect]
     Indication: DRUG USE FOR UNKNOWN INDICATION
     Dates: start: 20080630, end: 20080701

REACTIONS (6)
  - APPENDICITIS [None]
  - APPENDIX DISORDER [None]
  - DEHYDRATION [None]
  - GASTRIC DISORDER [None]
  - PAIN [None]
  - WHITE BLOOD CELL COUNT INCREASED [None]
